FAERS Safety Report 18806825 (Version 1)
Quarter: 2021Q1

REPORT INFORMATION
  Report Type: Spontaneous
  Country: US (occurrence: US)
  Receive Date: 20210128
  Receipt Date: 20210128
  Transmission Date: 20210419
  Serious: No
  Sender: FDA-Public Use
  Company Number: US-TEVA-2021-US-1871630

PATIENT
  Sex: Male

DRUGS (1)
  1. TESTOSTERONE 1% GEL [Suspect]
     Active Substance: TESTOSTERONE
     Route: 065

REACTIONS (4)
  - Malaise [Unknown]
  - Product use issue [Unknown]
  - Perfume sensitivity [Unknown]
  - Paraesthesia [Unknown]
